FAERS Safety Report 23144623 (Version 4)
Quarter: 2025Q1

REPORT INFORMATION
  Report Type: Spontaneous
  Country: US (occurrence: US)
  Receive Date: 20231103
  Receipt Date: 20250220
  Transmission Date: 20250408
  Serious: No
  Sender: PFIZER
  Company Number: US-PFIZER INC-PV202300179184

PATIENT
  Age: 67 Year
  Sex: Female

DRUGS (3)
  1. XELJANZ XR [Suspect]
     Active Substance: TOFACITINIB CITRATE
  2. VITAMIN D3 [Concomitant]
     Active Substance: CHOLECALCIFEROL
  3. PRASTERONE [Concomitant]
     Active Substance: PRASTERONE

REACTIONS (2)
  - Thyroid disorder [Not Recovered/Not Resolved]
  - Intentional product misuse [Unknown]
